FAERS Safety Report 5663820-1 (Version None)
Quarter: 2008Q1

REPORT INFORMATION
  Report Type: 
  Country: None (occurrence: None)
  Receive Date: 20080307
  Receipt Date: 20080226
  Transmission Date: 20080703
  Serious: Yes (Hospitalization)
  Sender: FDA-Public Use
  Company Number: B0510535A

PATIENT
  Age: 37 Year
  Sex: Female

DRUGS (3)
  1. IBUPROFEN [Suspect]
     Indication: PYREXIA
     Dosage: ORAL
     Route: 048
     Dates: start: 20050822, end: 20050907
  2. AMOXIL (FORMULATION UNKNOWN) [Suspect]
     Indication: PHARYNGITIS
     Dates: start: 20050822, end: 20050826
  3. LEVONORGESTREL AND ETHINYL ESTRADIOL [Concomitant]

REACTIONS (13)
  - EYE DISORDER [None]
  - EYE PAIN [None]
  - GENITAL LESION [None]
  - HEPATITIS CHOLESTATIC [None]
  - HYPERGAMMAGLOBULINAEMIA [None]
  - HYPOALBUMINAEMIA [None]
  - LYMPH NODE PAIN [None]
  - LYMPHADENOPATHY [None]
  - ORAL DISORDER [None]
  - RASH PRURITIC [None]
  - STEVENS-JOHNSON SYNDROME [None]
  - ULCERATIVE KERATITIS [None]
  - VISUAL ACUITY REDUCED [None]
